FAERS Safety Report 14819405 (Version 2)
Quarter: 2018Q2

REPORT INFORMATION
  Report Type: Spontaneous
  Country: US (occurrence: US)
  Receive Date: 20180427
  Receipt Date: 20180526
  Transmission Date: 20180711
  Serious: Yes (Hospitalization, Disabling, Other)
  Sender: FDA-Public Use
  Company Number: PHEH2018US015279

PATIENT
  Age: 52 Year
  Sex: Male

DRUGS (2)
  1. AMOXICILLIN AND CLAVULANATE [Suspect]
     Active Substance: AMOXICILLIN\CLAVULANIC ACID
     Indication: SINUSITIS
     Dosage: 1 OT, BID
     Route: 048
     Dates: start: 20180225, end: 20180306
  2. AMLODIPINE BESYLATE/ATORVASTATIN CALCIUM [Concomitant]
     Active Substance: AMLODIPINE BESYLATE\ATORVASTATIN CALCIUM
     Indication: PRODUCT USED FOR UNKNOWN INDICATION
     Dosage: UNK
     Route: 065

REACTIONS (13)
  - Confusional state [Recovering/Resolving]
  - Gait disturbance [Recovering/Resolving]
  - Abdominal discomfort [Unknown]
  - Decreased appetite [Recovering/Resolving]
  - Somnolence [Unknown]
  - Diarrhoea [Not Recovered/Not Resolved]
  - Faeces discoloured [Recovering/Resolving]
  - Liver injury [Not Recovered/Not Resolved]
  - Blood bilirubin increased [Unknown]
  - Chromaturia [Unknown]
  - Weight decreased [Unknown]
  - Lethargy [Not Recovered/Not Resolved]
  - Fatigue [Unknown]

NARRATIVE: CASE EVENT DATE: 20180317
